FAERS Safety Report 6118224-4 (Version None)
Quarter: 2009Q1

REPORT INFORMATION
  Report Type: 
  Country: None (occurrence: None)
  Receive Date: 20090314
  Receipt Date: 20090206
  Transmission Date: 20090719
  Serious: No
  Sender: FDA-Public Use
  Company Number: US-ABBOTT-09P-163-0502856-00

PATIENT
  Sex: Female

DRUGS (1)
  1. HUMIRA [Suspect]
     Indication: RHEUMATOID ARTHRITIS
     Dates: start: 20080912

REACTIONS (5)
  - ASTHENIA [None]
  - GINGIVAL DISCOLOURATION [None]
  - HYPOAESTHESIA [None]
  - PALLOR [None]
  - PERIPHERAL COLDNESS [None]
